FAERS Safety Report 10890528 (Version 1)
Quarter: 2015Q1

REPORT INFORMATION
  Report Type: Spontaneous
  Country: CO (occurrence: CO)
  Receive Date: 20150305
  Receipt Date: 20150305
  Transmission Date: 20150721
  Serious: Yes (Death, Other)
  Sender: FDA-Public Use
  Company Number: CO-AMGEN-COLSP2015019630

PATIENT
  Age: 7 Year
  Sex: Male
  Weight: 23 kg

DRUGS (3)
  1. NEULASTIM [Suspect]
     Active Substance: PEGFILGRASTIM
     Indication: PLATELET COUNT DECREASED
     Dosage: UNK UNK, QWK
     Route: 058
  2. KALETRA [Concomitant]
     Active Substance: LOPINAVIR\RITONAVIR
     Dosage: UNK
  3. FUZEON [Concomitant]
     Active Substance: ENFUVIRTIDE
     Dosage: UNK

REACTIONS (4)
  - Poor venous access [Unknown]
  - Systemic mycosis [Fatal]
  - Off label use [Unknown]
  - Pneumonia [Unknown]
